FAERS Safety Report 9960198 (Version 1)
Quarter: 2014Q1

REPORT INFORMATION
  Report Type: Report from Study
  Country: US (occurrence: US)
  Receive Date: 20140305
  Receipt Date: 20140305
  Transmission Date: 20141002
  Serious: No
  Sender: FDA-Public Use
  Company Number: US-ABBVIE-13P-163-1103247-00

PATIENT
  Age: 64 Year
  Sex: Female
  Weight: 101.24 kg

DRUGS (6)
  1. HUMIRA [Suspect]
     Indication: RHEUMATOID ARTHRITIS
     Route: 058
     Dates: start: 201202
  2. TRIAM/HCTZ [Concomitant]
     Indication: SWELLING
  3. PREDNISONE [Concomitant]
     Indication: RHEUMATOID ARTHRITIS
  4. AMLODIPINE BENAZEPRIL [Concomitant]
     Indication: HYPERTENSION
  5. ATORVASTATIN [Concomitant]
     Indication: BLOOD CHOLESTEROL INCREASED
  6. LEFLUNOMIDE [Concomitant]
     Indication: RHEUMATOID ARTHRITIS

REACTIONS (4)
  - Toothache [Recovering/Resolving]
  - Swelling [Recovering/Resolving]
  - Tooth disorder [Not Recovered/Not Resolved]
  - Dental leakage [Recovered/Resolved]
